FAERS Safety Report 7660210-7 (Version None)
Quarter: 2011Q3

REPORT INFORMATION
  Report Type: 
  Country: None (occurrence: None)
  Receive Date: 20110805
  Receipt Date: 20110728
  Transmission Date: 20111222
  Serious: Yes (Hospitalization)
  Sender: FDA-Public Use
  Company Number: PHHY2011CH68020

PATIENT
  Age: 83 Year
  Sex: Female

DRUGS (2)
  1. VOLTAREN [Suspect]
     Dosage: UNK UKN, UNK
     Route: 054
     Dates: end: 20110530
  2. PAROXETINE HCL [Concomitant]
     Dosage: 20 MG, DAILY
     Route: 048

REACTIONS (7)
  - HAEMOGLOBIN DECREASED [None]
  - SERUM FERRITIN DECREASED [None]
  - GASTRIC ULCER [None]
  - HAEMORRHOIDS [None]
  - PROCTITIS [None]
  - IRON DEFICIENCY ANAEMIA [None]
  - RECTAL HAEMORRHAGE [None]
